FAERS Safety Report 13307415 (Version 1)
Quarter: 2017Q1

REPORT INFORMATION
  Report Type: Spontaneous
  Country: US (occurrence: US)
  Receive Date: 20170308
  Receipt Date: 20170308
  Transmission Date: 20170428
  Serious: No
  Sender: FDA-Public Use
  Company Number: US-PERRIGO-16US018999

PATIENT
  Age: 9 Month
  Sex: Male

DRUGS (1)
  1. NAPROXEN SODIUM. [Suspect]
     Active Substance: NAPROXEN SODIUM
     Indication: ACCIDENTAL EXPOSURE TO PRODUCT BY CHILD
     Dosage: UNKNOWN, SINGLE
     Route: 048
     Dates: start: 20160809, end: 20160809

REACTIONS (2)
  - Expired product administered [Recovered/Resolved]
  - Accidental exposure to product by child [Recovered/Resolved]

NARRATIVE: CASE EVENT DATE: 20160809
